FAERS Safety Report 8366112-5 (Version None)
Quarter: 2012Q2

REPORT INFORMATION
  Report Type: 
  Country: None (occurrence: None)
  Receive Date: 20120516
  Receipt Date: 20120516
  Transmission Date: 20120825
  Serious: Yes (Other)
  Sender: FDA-Public Use
  Company Number: None

PATIENT
  Sex: Male
  Weight: 77.1115 kg

DRUGS (1)
  1. AMBIEN CR [Suspect]
     Indication: SLEEP APNOEA SYNDROME
     Dosage: 1 PILL 10 MG EVERY NITE FOR 7 YRS
     Dates: start: 20000101, end: 20070101

REACTIONS (11)
  - AMNESIA [None]
  - RASH [None]
  - MOOD SWINGS [None]
  - DIVORCED [None]
  - VISION BLURRED [None]
  - IRRITABILITY [None]
  - NIGHTMARE [None]
  - HEART RATE IRREGULAR [None]
  - ABNORMAL BEHAVIOUR [None]
  - DISTURBANCE IN ATTENTION [None]
  - LOSS OF CONSCIOUSNESS [None]
